FAERS Safety Report 20062385 (Version 1)
Quarter: 2021Q4

REPORT INFORMATION
  Report Type: Spontaneous
  Country: CN (occurrence: CN)
  Receive Date: 20211112
  Receipt Date: 20211112
  Transmission Date: 20220303
  Serious: Yes (Other)
  Sender: FDA-Public Use
  Company Number: CN-HQ SPECIALTY-CN-2021INT000214

PATIENT
  Age: 33 Year
  Sex: Male

DRUGS (3)
  1. CISPLATIN [Suspect]
     Active Substance: CISPLATIN
     Indication: Squamous cell carcinoma of the tongue
     Dosage: 40 MG/M2, QD, FOR 13 DAYS
     Route: 065
  2. RADIATION THERAPY [Suspect]
     Active Substance: RADIATION THERAPY
     Indication: Squamous cell carcinoma of the tongue
     Dosage: 11 FRACTIONS OF DAILY INTENSITY-MODULATED RADIATION THERAPY
     Route: 065
  3. UNSPECIFIED INGREDIENT [Concomitant]
     Active Substance: UNSPECIFIED INGREDIENT
     Indication: Myelosuppression
     Dosage: UNK
     Route: 058

REACTIONS (1)
  - Bone marrow failure [Unknown]
